FAERS Safety Report 13621252 (Version 1)
Quarter: 2017Q2

REPORT INFORMATION
  Report Type: Spontaneous
  Country: US (occurrence: US)
  Receive Date: 20170607
  Receipt Date: 20170607
  Transmission Date: 20170830
  Serious: No
  Sender: FDA-Public Use
  Company Number: US-PFIZER INC-2017241947

PATIENT
  Age: 46 Year
  Sex: Female

DRUGS (6)
  1. TAPAZOLE [Suspect]
     Active Substance: METHIMAZOLE
     Indication: HYPERTHYROIDISM
     Dosage: 10 MG, 2X/DAY
     Route: 048
     Dates: start: 201108
  2. TAPAZOLE [Suspect]
     Active Substance: METHIMAZOLE
     Dosage: 5MG OR LESS
     Route: 048
  3. METOPROLOL. [Concomitant]
     Active Substance: METOPROLOL
     Indication: TACHYCARDIA
     Dosage: 25 MG, 2X/DAY
     Dates: start: 201306
  4. HYDROXYZINE [Concomitant]
     Active Substance: HYDROXYZINE HYDROCHLORIDE
     Indication: DRUG HYPERSENSITIVITY
     Dosage: 25MG IN THE AM 75MG AT NIGHT
     Dates: start: 201302, end: 201502
  5. TAPAZOLE [Suspect]
     Active Substance: METHIMAZOLE
     Dosage: 2.5 MG, WEEKLY (AT REMISSION)
     Route: 048
  6. DIPHENHYDRAMINE. [Concomitant]
     Active Substance: DIPHENHYDRAMINE
     Indication: ANTIALLERGIC THERAPY
     Dosage: 50 MG, AT NIGHT (25 MG 2 AT NIGHT)
     Dates: start: 201502

REACTIONS (4)
  - Tachycardia [Recovering/Resolving]
  - Dysgeusia [Unknown]
  - Incorrect dose administered [Unknown]
  - Laboratory test abnormal [Unknown]
